FAERS Safety Report 9858596 (Version 1)
Quarter: 2014Q1

REPORT INFORMATION
  Report Type: Spontaneous
  Country: US (occurrence: None)
  Receive Date: 20140130
  Receipt Date: 20140130
  Transmission Date: 20141002
  Serious: Yes (Other)
  Sender: FDA-Public Use
  Company Number: None

PATIENT
  Age: 29 Year
  Sex: Female
  Weight: 93.44 kg

DRUGS (1)
  1. SAPHRIS ( 10 MG) [Suspect]
     Indication: BIPOLAR DISORDER
     Dosage: 1 PILL BID SUBLINGUAL
     Dates: start: 20131120, end: 20140129

REACTIONS (1)
  - Weight increased [None]
